FAERS Safety Report 8112135-0 (Version None)
Quarter: 2012Q1

REPORT INFORMATION
  Report Type: 
  Country: None (occurrence: None)
  Receive Date: 20120203
  Receipt Date: 20120201
  Transmission Date: 20120608
  Serious: Yes (Other)
  Sender: FDA-Public Use
  Company Number: JP-BAYER-2012-010838

PATIENT
  Age: 87 Year
  Sex: Female

DRUGS (2)
  1. ASPIRIN [Suspect]
     Dosage: UNK
     Route: 048
     Dates: start: 20100101, end: 20110524
  2. LANSOPRAZOLE [Suspect]
     Dosage: DAILY DOSE 15 MG
     Route: 048
     Dates: start: 20090101, end: 20110524

REACTIONS (1)
  - COLITIS MICROSCOPIC [None]
